FAERS Safety Report 6620796-8 (Version None)
Quarter: 2010Q1

REPORT INFORMATION
  Report Type: 
  Country: None (occurrence: None)
  Receive Date: 20100309
  Receipt Date: 20100301
  Transmission Date: 20100710
  Serious: Yes (Other)
  Sender: FDA-Public Use
  Company Number: FR-WATSON-2010-02437

PATIENT
  Age: 37 Year
  Sex: Female

DRUGS (3)
  1. MORPHINE SULFATE INJ [Suspect]
     Indication: ANALGESIC THERAPY
     Dosage: 150 U/G, SINGLE
     Route: 024
  2. BUPIVACAINE HCL [Suspect]
     Indication: ANAESTHESIA
     Dosage: 12.5 MG, SINGLE
     Route: 024
  3. SUFENTANIL CITRATE [Suspect]
     Indication: ANAESTHESIA
     Dosage: 2.5 U/G, SINGLE
     Route: 024

REACTIONS (2)
  - CONVERSION DISORDER [None]
  - PARAPLEGIA [None]
